FAERS Safety Report 21217161 (Version 1)
Quarter: 2022Q3

REPORT INFORMATION
  Report Type: Spontaneous
  Country: US (occurrence: US)
  Receive Date: 20220816
  Receipt Date: 20220816
  Transmission Date: 20221027
  Serious: Yes (Other)
  Sender: FDA-Public Use
  Company Number: US-GILEAD-2022-0593520

PATIENT
  Sex: Male

DRUGS (1)
  1. VIREAD [Suspect]
     Active Substance: TENOFOVIR DISOPROXIL FUMARATE
     Indication: HIV infection
     Dosage: UNK
     Route: 048
     Dates: start: 2004, end: 2014

REACTIONS (11)
  - Multiple fractures [Unknown]
  - Arm amputation [Unknown]
  - Immobile [Unknown]
  - Paralysis [Unknown]
  - Wheelchair user [Unknown]
  - Bone disorder [Unknown]
  - Spinal osteoarthritis [Unknown]
  - Bone deformity [Unknown]
  - Pain [Unknown]
  - Tooth disorder [Unknown]
  - Tooth loss [Unknown]
